FAERS Safety Report 8790683 (Version 1)
Quarter: 2012Q4

REPORT INFORMATION
  Report Type: Spontaneous
  Country: US (occurrence: None)
  Receive Date: 20120913
  Receipt Date: 20120913
  Transmission Date: 20130627
  Serious: Yes (Hospitalization)
  Sender: FDA-Public Use
  Company Number: None

PATIENT
  Age: 37 Year
  Sex: Female
  Weight: 68.04 kg

DRUGS (1)
  1. XYREM [Suspect]
     Indication: EXCESSIVE DAYTIME SLEEPINESS
     Dosage: 4.5 QHS BID po
     Route: 048
     Dates: start: 20100701, end: 20120912

REACTIONS (3)
  - Coma [None]
  - Urinary incontinence [None]
  - Faecal incontinence [None]
